FAERS Safety Report 9129947 (Version 2)
Quarter: 2013Q1

REPORT INFORMATION
  Report Type: Spontaneous
  Country: US (occurrence: US)
  Receive Date: 20130228
  Receipt Date: 20130321
  Transmission Date: 20140127
  Serious: Yes (Hospitalization, Other)
  Sender: FDA-Public Use
  Company Number: US-PFIZER INC-2013071720

PATIENT
  Age: 64 Year
  Sex: Male
  Weight: 64.85 kg

DRUGS (3)
  1. LIPITOR [Suspect]
     Indication: BLOOD CHOLESTEROL INCREASED
     Dosage: 40 MG, 1X/DAY
     Dates: start: 2007
  2. LIPITOR [Suspect]
     Indication: HYPERTENSION
  3. AMLODIPINE BESILATE [Suspect]
     Indication: HYPERTENSION
     Dosage: 5 MG, 1X/DAY
     Route: 048

REACTIONS (4)
  - Blood pressure inadequately controlled [Unknown]
  - Chronic obstructive pulmonary disease [Not Recovered/Not Resolved]
  - Cholelithiasis [Unknown]
  - Pancreatitis [Unknown]
